FAERS Safety Report 7580028 (Version 2)
Quarter: 2012Q4

REPORT INFORMATION
  Report Type: 
  Country: FR (occurrence: FR)
  Receive Date: 20100910
  Receipt Date: 20121219
  Transmission Date: 20130627
  Serious: Yes (Death, Hospitalization)
  Sender: FDA-Public Use
  Company Number: FR-PFIZER INC-2010043611

PATIENT
  Age: 71 Year
  Sex: Female

DRUGS (9)
  1. ZYVOXID [Suspect]
     Dosage: 1200 mg, 1x/day
     Route: 048
     Dates: end: 20100324
  2. VALGANCICLOVIR [Suspect]
     Indication: CMV VIREMIA
     Dosage: UNK
     Route: 048
     Dates: start: 201003, end: 20100323
  3. CELLCEPT [Suspect]
     Dosage: 500 mg, 3x/day
     Route: 048
     Dates: start: 200906
  4. PROGRAF [Concomitant]
     Dosage: 1.5 mg
  5. CORTANCYL [Concomitant]
  6. ATENOLOL [Concomitant]
     Dosage: 50 mg, daily
     Dates: start: 20090627
  7. ATORVASTATIN [Concomitant]
     Dosage: 10 mg, daily
     Dates: start: 20090608
  8. ASPEGIC [Concomitant]
     Dosage: 100 mg, daily
     Dates: start: 20091217
  9. BACTRIM [Concomitant]
     Dosage: UNK
     Dates: start: 20090831

REACTIONS (1)
  - Pancytopenia [Fatal]
